FAERS Safety Report 13804480 (Version 1)
Quarter: 2017Q3

REPORT INFORMATION
  Report Type: Spontaneous
  Country: TH (occurrence: TH)
  Receive Date: 20170728
  Receipt Date: 20170728
  Transmission Date: 20171127
  Serious: Yes (Other)
  Sender: FDA-Public Use
  Company Number: TH-ORION CORPORATION ORION PHARMA-ENT 2017-0121

PATIENT
  Age: 63 Year
  Sex: Female

DRUGS (13)
  1. PRAMIPEXOLE. [Concomitant]
     Active Substance: PRAMIPEXOLE
     Dosage: STRENGTH: 0.25 OT
     Route: 048
     Dates: start: 201205
  2. PRAMIPEXOLE. [Concomitant]
     Active Substance: PRAMIPEXOLE
     Dosage: STRENGTH: 0.25 OT, AT BEDTIME
     Route: 048
     Dates: start: 201001
  3. LEVODOPA BENSERAZIDE [Concomitant]
     Active Substance: BENSERAZIDE\LEVODOPA
     Dosage: AT 6, 10, 14, 18.00 (STRENGTH: 200/50 OT)
     Route: 048
     Dates: start: 20150429
  4. MADOPAR [Concomitant]
     Active Substance: BENSERAZIDE HYDROCHLORIDE\LEVODOPA
     Dosage: AT BEDTIME
     Route: 065
     Dates: start: 201505
  5. COMTAN [Suspect]
     Active Substance: ENTACAPONE
     Dosage: AT 6, 10, 14, 18.00
     Route: 048
     Dates: start: 201505
  6. LEVODOPA BENSERAZIDE [Concomitant]
     Active Substance: BENSERAZIDE\LEVODOPA
     Dosage: STRENGTH: 200/50 OT
     Route: 048
     Dates: start: 2008
  7. LEVODOPA BENSERAZIDE [Concomitant]
     Active Substance: BENSERAZIDE\LEVODOPA
     Dosage: AT 7.30, 11.30, 15.30 AND 17.30 (STRENGTH: 200/50 OT)
     Route: 048
     Dates: start: 201405
  8. TRIHEXYPHENIDYL [Concomitant]
     Active Substance: TRIHEXYPHENIDYL
     Route: 048
     Dates: start: 201706
  9. CLONAZEPAM. [Concomitant]
     Active Substance: CLONAZEPAM
     Dosage: STRENGTH: 0.5 OT, AT BEDTIME
     Route: 048
     Dates: start: 201205
  10. PRAMIPEXOLE. [Concomitant]
     Active Substance: PRAMIPEXOLE
     Dosage: STRENGTH: 0.375 OT
     Route: 048
     Dates: start: 201705
  11. COMTAN [Suspect]
     Active Substance: ENTACAPONE
     Dosage: AT 6, 10, 14 AND 18.00
     Route: 048
     Dates: start: 20150429
  12. PRAMIPEXOLE. [Concomitant]
     Active Substance: PRAMIPEXOLE
     Dosage: STRENGTH: 0.25 OT
     Route: 048
     Dates: start: 201210
  13. TRIHEXYPHENIDYL [Concomitant]
     Active Substance: TRIHEXYPHENIDYL
     Route: 048
     Dates: start: 20150429, end: 201705

REACTIONS (8)
  - Nightmare [Unknown]
  - Sleep disorder [Unknown]
  - Bradykinesia [Unknown]
  - Akinesia [Unknown]
  - Muscle rigidity [Unknown]
  - Hallucination, visual [Recovering/Resolving]
  - Wrong technique in product usage process [Recovered/Resolved]
  - Tremor [Not Recovered/Not Resolved]

NARRATIVE: CASE EVENT DATE: 20150429
